FAERS Safety Report 4446834-9 (Version None)
Quarter: 2004Q3

REPORT INFORMATION
  Report Type: 
  Country: None (occurrence: None)
  Receive Date: 20040908
  Receipt Date: 20040824
  Transmission Date: 20050211
  Serious: Yes (Disabling, Other)
  Sender: FDA-Public Use
  Company Number: 2004230173US

PATIENT
  Age: 54 Year
  Sex: Female
  Weight: 99.8 kg

DRUGS (24)
  1. DETROL LA [Suspect]
     Indication: HYPERTONIC BLADDER
     Dosage: 4 MG, QD, ORAL
     Route: 048
  2. ALLEGRA [Concomitant]
  3. HUMIBID [Concomitant]
  4. GUAIFENESIN [Concomitant]
  5. NIZATIDINE [Concomitant]
  6. LIPITOR [Concomitant]
  7. TRICOR [Concomitant]
  8. RISPERDAL [Concomitant]
  9. TOPAMAX [Concomitant]
  10. SINGULAIR [Concomitant]
  11. NORVASC [Concomitant]
  12. REQUIP [Concomitant]
  13. LEXAPRO [Concomitant]
  14. SYNTHROID [Concomitant]
  15. FLONASE [Concomitant]
  16. ASTELIN [Concomitant]
  17. VITAMIN B-12 [Concomitant]
  18. ASPIRIN [Concomitant]
  19. PROVIGIL [Concomitant]
  20. HORMONE THERAPY [Concomitant]
  21. SKELAXIN [Concomitant]
  22. ULTRACET [Concomitant]
  23. FIORINAL [Concomitant]
  24. VIOXX [Concomitant]

REACTIONS (3)
  - KERATOCONJUNCTIVITIS SICCA [None]
  - RETINAL VASCULAR THROMBOSIS [None]
  - SCOTOMA [None]
